FAERS Safety Report 19556538 (Version 1)
Quarter: 2021Q3

REPORT INFORMATION
  Report Type: Spontaneous
  Country: IN (occurrence: IN)
  Receive Date: 20210715
  Receipt Date: 20210715
  Transmission Date: 20211014
  Serious: Yes (Other)
  Sender: FDA-Public Use
  Company Number: IN-UNICHEM PHARMACEUTICALS (USA) INC-UCM202107-000655

PATIENT
  Age: 44 Year
  Sex: Male

DRUGS (4)
  1. MORPHINE [Concomitant]
     Active Substance: MORPHINE
     Indication: MENTAL DISORDER
     Dosage: UNKNOWN
  2. QUETIAPINE. [Suspect]
     Active Substance: QUETIAPINE
     Indication: MENTAL DISORDER
     Dosage: UNKNOWN
  3. VENLAFAXINE [Suspect]
     Active Substance: VENLAFAXINE HYDROCHLORIDE
     Indication: MENTAL DISORDER
     Dosage: UNKNOWN
  4. PREGABALIN. [Concomitant]
     Active Substance: PREGABALIN
     Indication: MENTAL DISORDER

REACTIONS (1)
  - Serotonin syndrome [Recovered/Resolved]
